FAERS Safety Report 7471644-8 (Version None)
Quarter: 2011Q2

REPORT INFORMATION
  Report Type: 
  Country: None (occurrence: None)
  Receive Date: 20110502
  Receipt Date: 20110415
  Transmission Date: 20111010
  Serious: Yes (Hospitalization)
  Sender: FDA-Public Use
  Company Number: US-DEXPHARM-20110457

PATIENT
  Sex: Female
  Weight: 54 kg

DRUGS (5)
  1. OMEPRAZOLE [Suspect]
     Indication: DYSPEPSIA
     Dosage: 20 MG ONCE A DAY, ORAL
     Route: 048
     Dates: start: 20080304, end: 20110415
  2. ACETAMINOPHEN [Concomitant]
  3. PROPYLTHIOURACIL [Concomitant]
  4. PROPRANOLOL [Concomitant]
  5. CALCIUM CARBONATE [Concomitant]

REACTIONS (6)
  - OSTEOPOROSIS [None]
  - INCORRECT DRUG ADMINISTRATION DURATION [None]
  - SPINAL FRACTURE [None]
  - DRUG EFFECT DECREASED [None]
  - WRIST FRACTURE [None]
  - PRODUCT SUBSTITUTION ISSUE [None]
